FAERS Safety Report 9212707 (Version 1)
Quarter: 2013Q2

REPORT INFORMATION
  Report Type: Spontaneous
  Country: US (occurrence: US)
  Receive Date: 20130405
  Receipt Date: 20130405
  Transmission Date: 20140414
  Serious: No
  Sender: FDA-Public Use
  Company Number: US-BIOGENIDEC-2013BI029736

PATIENT
  Age: 17 Year
  Sex: Male

DRUGS (1)
  1. TYSABRI [Suspect]
     Indication: MULTIPLE SCLEROSIS
     Route: 042
     Dates: start: 20110720

REACTIONS (4)
  - Back pain [Recovered/Resolved]
  - Off label use [Recovered/Resolved]
  - Drug effect decreased [Recovered/Resolved]
  - Headache [Recovered/Resolved]
